FAERS Safety Report 7280558-8 (Version None)
Quarter: 2011Q1

REPORT INFORMATION
  Report Type: 
  Country: None (occurrence: None)
  Receive Date: 20110131
  Receipt Date: 20110120
  Transmission Date: 20110831
  Serious: Yes (Hospitalization)
  Sender: FDA-Public Use
  Company Number: 1000018257

PATIENT
  Age: 32 Year
  Sex: Female

DRUGS (8)
  1. SAVELLA [Suspect]
  2. GLUCOPHAGE (METFORMIN) (METFORMTN) [Concomitant]
  3. NAPROXEN [Concomitant]
  4. PREVACID (LANSOPRAZOLE) (LANSOPRAZOLE) [Concomitant]
  5. CIPRO(CIPROFLOXACIN) (CIPROFLOXACIN [Concomitant]
  6. NEURONTIN [Concomitant]
  7. CARDIZEM (DILTIAZEM HYDROCHLORIDE) (DILTIAZEM HYDROCHLORIDE) [Concomitant]
  8. COUMADIN (WARFARIN) (WARFARIN) [Concomitant]

REACTIONS (2)
  - CELLULITIS [None]
  - TACHYCARDIA [None]
